FAERS Safety Report 22661210 (Version 1)
Quarter: 2023Q2

REPORT INFORMATION
  Report Type: Spontaneous
  Country: US (occurrence: US)
  Receive Date: 20230630
  Receipt Date: 20230630
  Transmission Date: 20230721
  Serious: No
  Sender: FDA-Public Use
  Company Number: US-JAZZ PHARMACEUTICALS-2022-US-025367

PATIENT
  Sex: Female

DRUGS (4)
  1. EPIDIOLEX [Suspect]
     Active Substance: CANNABIDIOL
     Indication: Simple partial seizures
     Dosage: 150 MH, BID
     Route: 048
     Dates: start: 20220318
  2. LEVETIRACETAM [Concomitant]
     Active Substance: LEVETIRACETAM
     Dosage: UNK
  3. VALTOCO [Concomitant]
     Active Substance: DIAZEPAM
     Dosage: UNK
  4. MULTIVITAMIN HP [Concomitant]
     Dosage: UNK

REACTIONS (1)
  - Off label use [Unknown]
